FAERS Safety Report 5794498-4 (Version None)
Quarter: 2008Q2

REPORT INFORMATION
  Report Type: 
  Country: None (occurrence: None)
  Receive Date: 20080620
  Receipt Date: 20080606
  Transmission Date: 20081010
  Serious: Yes (Death, Life-Threatening, Hospitalization, Other)
  Sender: FDA-Public Use
  Company Number: THYM-1000687

PATIENT
  Age: 32 Year
  Sex: Female
  Weight: 58 kg

DRUGS (4)
  1. THYMOGLOBULIN [Suspect]
     Indication: STEM CELL TRANSPLANT
     Dosage: 175 MG, QD, INTRAVENOUS
     Route: 042
     Dates: start: 20070709, end: 20070712
  2. BUSULPHAN (BUSULFAN) [Suspect]
     Indication: STEM CELL TRANSPLANT
     Dosage: 180 MG, INTRAVENOUS
     Route: 042
     Dates: start: 20070706, end: 20070707
  3. FLUDARABINE (FLUDARABINE PHOSPHATE) [Suspect]
     Indication: STEM CELL TRANSPLANT
     Dosage: 80 MG, ORAL
     Route: 048
     Dates: start: 20070703, end: 20070708
  4. CAMPATH [Suspect]
     Indication: T-CELL DEPLETION
     Dosage: 20 MG, INTRAVENOUS
     Route: 042
     Dates: start: 20070713

REACTIONS (5)
  - BONE MARROW TRANSPLANT REJECTION [None]
  - BRONCHOPULMONARY ASPERGILLOSIS [None]
  - EPSTEIN-BARR VIRUS INFECTION [None]
  - MULTI-ORGAN FAILURE [None]
  - POST TRANSPLANT LYMPHOPROLIFERATIVE DISORDER [None]
